FAERS Safety Report 7936219-2 (Version None)
Quarter: 2011Q4

REPORT INFORMATION
  Report Type: 
  Country: None (occurrence: None)
  Receive Date: 20111123
  Receipt Date: 20111115
  Transmission Date: 20120403
  Serious: Yes (Other)
  Sender: FDA-Public Use
  Company Number: CA-PFIZER INC-2011280990

PATIENT
  Age: 64 Year
  Sex: Female
  Weight: 60.3 kg

DRUGS (2)
  1. AVELOX [Concomitant]
     Indication: PNEUMONIA
     Dosage: UNK
     Dates: start: 20101001
  2. SIROLIMUS [Suspect]
     Indication: IMMUNOSUPPRESSION
     Dosage: 2 MG, 1X/DAY
     Route: 048
     Dates: start: 20070222

REACTIONS (1)
  - ERYTHEMA NODOSUM [None]
